FAERS Safety Report 10170515 (Version 4)
Quarter: 2014Q3

REPORT INFORMATION
  Report Type: Spontaneous
  Country: JP (occurrence: JP)
  Receive Date: 20140513
  Receipt Date: 20140721
  Transmission Date: 20150326
  Serious: Yes (Death, Other)
  Sender: FDA-Public Use
  Company Number: PHHY2014JP057257

PATIENT
  Age: 3 Year
  Sex: Female

DRUGS (1)
  1. EXJADE [Suspect]
     Active Substance: DEFERASIROX
     Indication: IRON OVERLOAD
     Dosage: 9.9 MG/KG, DAILY
     Route: 048

REACTIONS (3)
  - Vomiting [Unknown]
  - Medulloblastoma [Fatal]
  - Convulsion [Unknown]
